FAERS Safety Report 20878070 (Version 1)
Quarter: 2022Q2

REPORT INFORMATION
  Report Type: Spontaneous
  Country: US (occurrence: None)
  Receive Date: 20220525
  Receipt Date: 20220525
  Transmission Date: 20220721
  Serious: Yes (unspecified)
  Sender: FDA-Public Use
  Company Number: None

PATIENT
  Age: 49 Year
  Sex: Female
  Weight: 70.2 kg

DRUGS (1)
  1. ESTRADIOL TRANSDERMAL SYSTEM [Suspect]
     Active Substance: ESTRADIOL
     Indication: Hormone replacement therapy
     Dosage: OTHER QUANTITY : 1 PATCH(ES);?OTHER FREQUENCY : ONCE WEEKLY;?
     Route: 062
     Dates: start: 20220522, end: 20220525

REACTIONS (4)
  - Product adhesion issue [None]
  - Myalgia [None]
  - Application site pain [None]
  - Product substitution issue [None]

NARRATIVE: CASE EVENT DATE: 20220522
